FAERS Safety Report 14195767 (Version 1)
Quarter: 2017Q4

REPORT INFORMATION
  Report Type: Spontaneous
  Country: US (occurrence: US)
  Receive Date: 20171116
  Receipt Date: 20171116
  Transmission Date: 20180321
  Serious: No
  Sender: FDA-Public Use
  Company Number: US-BAUSCH-BL-2017-016730

PATIENT
  Age: 67 Year
  Sex: Female
  Weight: 94.61 kg

DRUGS (3)
  1. XENAZINE [Suspect]
     Active Substance: TETRABENAZINE
     Dosage: 12.5 MG ONE WITH EACH MEAL (THREE TIMES A DAY)
     Route: 048
     Dates: start: 201704, end: 2017
  2. XENAZINE [Suspect]
     Active Substance: TETRABENAZINE
     Dosage: 25 MG WITH BREAKFAST AND 12.5 MG WITH LUNCH AND 12.5 MG WITH DINNER
     Route: 048
     Dates: start: 201705, end: 20170511
  3. XENAZINE [Suspect]
     Active Substance: TETRABENAZINE
     Indication: MOVEMENT DISORDER
     Dosage: 12.5 MG ONE WITH BREAKFAST AND ONE WITH LUNCH
     Route: 048
     Dates: start: 20170418, end: 201704

REACTIONS (1)
  - Drug intolerance [Recovered/Resolved]

NARRATIVE: CASE EVENT DATE: 20170511
